FAERS Safety Report 23997179 (Version 1)
Quarter: 2024Q2

REPORT INFORMATION
  Report Type: Spontaneous
  Country: DE (occurrence: DE)
  Receive Date: 20240621
  Receipt Date: 20240621
  Transmission Date: 20240716
  Serious: Yes (Hospitalization, Other)
  Sender: FDA-Public Use
  Company Number: None

PATIENT
  Age: 27 Year
  Sex: Female

DRUGS (7)
  1. CHORIOGONADOTROPIN ALFA [Suspect]
     Active Substance: CHORIOGONADOTROPIN ALFA
     Indication: Assisted reproductive technology
     Dates: start: 20240521, end: 20240521
  2. CHORIOGONADOTROPIN ALFA [Suspect]
     Active Substance: CHORIOGONADOTROPIN ALFA
     Dates: start: 20240527, end: 20240527
  3. TRIPTORELIN [Suspect]
     Active Substance: TRIPTORELIN
     Indication: Assisted reproductive technology
     Dates: start: 20240519, end: 20240519
  4. ORGALUTRAN [Suspect]
     Active Substance: GANIRELIX ACETATE
     Indication: Assisted reproductive technology
     Dates: start: 20240515, end: 20240518
  5. PROGESTERONE [Suspect]
     Active Substance: PROGESTERONE
     Indication: Assisted reproductive technology
     Dates: start: 20240522
  6. FOLLITROPIN DELTA [Suspect]
     Active Substance: FOLLITROPIN DELTA
     Indication: Assisted reproductive technology
     Dates: start: 20240510, end: 20240514
  7. FOLLITROPIN DELTA [Suspect]
     Active Substance: FOLLITROPIN DELTA
     Dates: start: 20240515, end: 20240518

REACTIONS (3)
  - Ovarian hyperstimulation syndrome [Recovered/Resolved]
  - Ascites [Recovered/Resolved]
  - Ovarian enlargement [Recovered/Resolved]

NARRATIVE: CASE EVENT DATE: 20240527
